FAERS Safety Report 11448520 (Version 3)
Quarter: 2016Q1

REPORT INFORMATION
  Report Type: Report from Study
  Country: JP (occurrence: JP)
  Receive Date: 20150902
  Receipt Date: 20160219
  Transmission Date: 20160525
  Serious: Yes (Other)
  Sender: FDA-Public Use
  Company Number: JP-GSKJP-JP2015JPN122186AA

PATIENT
  Age: 50 Year
  Sex: Male

DRUGS (15)
  1. ISENTRESS [Suspect]
     Active Substance: RALTEGRAVIR POTASSIUM
     Indication: HIV INFECTION
     Dosage: 800 MG, 1D
     Route: 048
     Dates: start: 20150213
  2. VALIXA [Suspect]
     Active Substance: VALGANCICLOVIR
     Indication: CYTOMEGALOVIRUS INFECTION
     Dosage: 900 MG, BID
     Route: 048
     Dates: start: 20150128, end: 20150202
  3. PENTAMIDINE ISETIONATE [Concomitant]
     Active Substance: PENTAMIDINE ISETHIONATE
     Dosage: 300 MG, QD
     Dates: start: 20150310, end: 20150310
  4. BENAMBAX [Concomitant]
     Active Substance: PENTAMIDINE
     Indication: PROPHYLAXIS
     Dosage: UNK
     Route: 055
     Dates: start: 20150210, end: 20150210
  5. EPZICOM [Suspect]
     Active Substance: ABACAVIR SULFATE\LAMIVUDINE
     Indication: HIV INFECTION
     Dosage: 1 DF, 1D
     Route: 048
     Dates: start: 20150213
  6. BENAMBAX [Concomitant]
     Active Substance: PENTAMIDINE
     Dosage: UNK
     Route: 055
     Dates: start: 20150310, end: 20150310
  7. FUNGIZONE [Concomitant]
     Active Substance: AMPHOTERICIN B
     Indication: ORAL CANDIDIASIS
     Dosage: 100 MG, QID
     Dates: start: 20150216, end: 20150221
  8. PENTAMIDINE ISETIONATE [Concomitant]
     Active Substance: PENTAMIDINE ISETHIONATE
     Indication: PNEUMOCYSTIS JIROVECII PNEUMONIA
     Dosage: 3 MG/KG, QD
     Dates: start: 20150112, end: 20150122
  9. SAWACILLIN [Concomitant]
     Active Substance: AMOXICILLIN
     Indication: CELLULITIS
     Dosage: 500 MG, TID
     Dates: start: 20150126, end: 20150127
  10. MICARDIS [Concomitant]
     Active Substance: TELMISARTAN
     Indication: HYPERTENSION
     Dosage: 40 MG, QD
     Dates: start: 20150304
  11. SULFAMETHOXAZOLE-TRIMETHOPRIM (SMZ) [Concomitant]
     Active Substance: SULFAMETHOXAZOLE\TRIMETHOPRIM
     Indication: PNEUMOCYSTIS JIROVECII PNEUMONIA
     Dosage: 4 DF, QD
     Dates: start: 20150102, end: 20150111
  12. PENTAMIDINE ISETIONATE [Concomitant]
     Active Substance: PENTAMIDINE ISETHIONATE
     Dosage: 300 MG, QD
     Dates: start: 20150224, end: 20150224
  13. ATOVAQUONE. [Suspect]
     Active Substance: ATOVAQUONE
     Indication: ANTIFUNGAL PROPHYLAXIS
     Dosage: 750 MG, BID
     Route: 048
     Dates: start: 20150123, end: 20150206
  14. BENAMBAX [Concomitant]
     Active Substance: PENTAMIDINE
     Dosage: UNK
     Route: 055
     Dates: start: 20150224, end: 20150224
  15. PENTAMIDINE ISETIONATE [Concomitant]
     Active Substance: PENTAMIDINE ISETHIONATE
     Indication: ANTIFUNGAL PROPHYLAXIS
     Dosage: 300 MG, QD
     Dates: start: 20150210, end: 20150210

REACTIONS (5)
  - Neutrophil count decreased [Recovered/Resolved]
  - Cellulitis [Recovered/Resolved]
  - Arthritis reactive [Recovering/Resolving]
  - Seborrhoeic dermatitis [Recovering/Resolving]
  - Toxic skin eruption [Recovered/Resolved]

NARRATIVE: CASE EVENT DATE: 20150202
